FAERS Safety Report 21758826 (Version 2)
Quarter: 2023Q1

REPORT INFORMATION
  Report Type: Spontaneous
  Country: US (occurrence: US)
  Receive Date: 20221221
  Receipt Date: 20230117
  Transmission Date: 20230418
  Serious: Yes (Death, Other)
  Sender: FDA-Public Use
  Company Number: US-BRISTOL-MYERS SQUIBB COMPANY-2022-156598

PATIENT
  Age: 87 Year
  Sex: Female
  Weight: 65.8 kg

DRUGS (20)
  1. ELIQUIS [Suspect]
     Active Substance: APIXABAN
     Indication: Cerebrovascular accident prophylaxis
     Route: 048
     Dates: start: 20160915
  2. METOPROLOL TARTRATE [Concomitant]
     Active Substance: METOPROLOL TARTRATE
     Indication: Product used for unknown indication
     Route: 048
  3. ASPIRIN [Concomitant]
     Active Substance: ASPIRIN
     Indication: Product used for unknown indication
     Dosage: DOSE: 81 MG 1 ORAL DELAYED RELEASE TABLET ORALLY DAILY
     Route: 048
  4. ACETAMINOPHEN [Concomitant]
     Active Substance: ACETAMINOPHEN
     Indication: Prophylaxis
     Dosage: DOSE: 650 MG 2 TABLETS ORALLY Q4HR FOR PRN
     Route: 048
  5. DEXTROSE [Concomitant]
     Active Substance: DEXTROSE
     Indication: Prophylaxis
     Dosage: DEXTROSE 10% IN WATER. DOSE: 250 ML IV
     Route: 042
  6. DEXTROSE [Concomitant]
     Active Substance: DEXTROSE
     Dosage: DEXTROSE 50% IN WATER INJECTION (12.5 G) DOSE: 25 ML IV PUSH Q15MINS FOR PREVENTION
     Route: 042
  7. GLUCAGON [Concomitant]
     Active Substance: GLUCAGON
     Indication: Prophylaxis
     Dosage: GLUCAGON 1 MG= 1 ML INTRAMUSCULAR AS INDICATED FOR PREVENTION
     Route: 030
  8. GLUCAGON [Concomitant]
     Active Substance: GLUCAGON
     Route: 048
  9. HYDRALAZINE [Concomitant]
     Active Substance: HYDRALAZINE HYDROCHLORIDE
     Indication: Prophylaxis
     Route: 042
  10. LEVEMIR [Concomitant]
     Active Substance: INSULIN DETEMIR
     Indication: Prophylaxis
     Dosage: STRENGTH: 100 UNITS/ML SUBCUTANEOUS SOLUTION DOSE: 14 UNITS SUBCUTANEOUS AT BEDTIME
     Route: 058
  11. LIPITOR [Concomitant]
     Active Substance: ATORVASTATIN CALCIUM
     Indication: Product used for unknown indication
     Route: 048
  12. MECLIZINE [Concomitant]
     Active Substance: MECLIZINE HYDROCHLORIDE
     Indication: Prophylaxis
     Route: 048
  13. MIRALAX [Concomitant]
     Active Substance: POLYETHYLENE GLYCOL 3350
     Indication: Prophylaxis
     Dosage: DOSE=17 G (1 PACKET) ORAL DAILY
     Route: 048
  14. TUMS [Concomitant]
     Active Substance: CALCIUM CARBONATE
     Indication: Prophylaxis
     Route: 048
  15. ZOFRAN [Concomitant]
     Active Substance: ONDANSETRON HYDROCHLORIDE
     Indication: Prophylaxis
     Route: 042
  16. HUMALOG [Concomitant]
     Active Substance: INSULIN LISPRO
     Indication: Product used for unknown indication
     Dosage: DOSE: 14 UNITS SUBCUTANEOUS DAILY
     Route: 058
  17. LISINOPRIL [Concomitant]
     Active Substance: LISINOPRIL
     Indication: Product used for unknown indication
     Route: 048
  18. NOVOLOG [Concomitant]
     Active Substance: INSULIN ASPART
     Indication: Product used for unknown indication
     Dosage: STRENGTH: 100 UNITS/ML INJECTABLE SOLUTION DOSE: 14 UNITS SUBCUTANEOUS TIDAC
     Route: 058
  19. SYNTHROID [Concomitant]
     Active Substance: LEVOTHYROXINE SODIUM
     Indication: Product used for unknown indication
     Route: 048
  20. VITAMIN B12 [Concomitant]
     Active Substance: CYANOCOBALAMIN
     Indication: Product used for unknown indication
     Route: 048

REACTIONS (1)
  - Death [Fatal]
